FAERS Safety Report 8857669 (Version 1)
Quarter: 2012Q4

REPORT INFORMATION
  Report Type: 
  Country: US (occurrence: US)
  Receive Date: 20121024
  Receipt Date: 20121024
  Transmission Date: 20130627
  Serious: Yes (Hospitalization)
  Sender: FDA-Public Use
  Company Number: US-PFIZER INC-2012108101

PATIENT
  Sex: Female

DRUGS (2)
  1. XANAX [Suspect]
     Dosage: 1 mg, UNK
     Dates: end: 201210
  2. ALPRAZOLAM [Suspect]
     Dosage: UNK

REACTIONS (6)
  - Malaise [Unknown]
  - Panic attack [Unknown]
  - Heart rate abnormal [Unknown]
  - Drug withdrawal syndrome [Unknown]
  - Anxiety [Unknown]
  - Nervousness [Unknown]
